FAERS Safety Report 8077506-X (Version None)
Quarter: 2012Q1

REPORT INFORMATION
  Report Type: 
  Country: None (occurrence: None)
  Receive Date: 20120126
  Receipt Date: 20120126
  Transmission Date: 20120608
  Serious: Yes (Disabling)
  Sender: FDA-Public Use
  Company Number: None

PATIENT
  Age: 64 Year
  Sex: Male
  Weight: 81.6 kg

DRUGS (1)
  1. LEVITRA [Suspect]
     Indication: ERECTILE DYSFUNCTION
     Dosage: 5MG PRN ORAL
     Route: 048
     Dates: start: 20040301, end: 20120125

REACTIONS (2)
  - DEAFNESS UNILATERAL [None]
  - DRUG INEFFECTIVE [None]
